FAERS Safety Report 6417917-9 (Version None)
Quarter: 2009Q4

REPORT INFORMATION
  Report Type: 
  Country: None (occurrence: None)
  Receive Date: 20091028
  Receipt Date: 20091019
  Transmission Date: 20100525
  Serious: Yes (Other)
  Sender: FDA-Public Use
  Company Number: B0598663A

PATIENT
  Age: 55 Year
  Sex: Female
  Weight: 70 kg

DRUGS (1)
  1. RANITIDINE [Suspect]
     Indication: DUODENOGASTRIC REFLUX
     Dosage: 600MG PER DAY
     Route: 048
     Dates: start: 20091003, end: 20091010

REACTIONS (3)
  - DIZZINESS [None]
  - HALLUCINATION [None]
  - TREMOR [None]
